FAERS Safety Report 12989836 (Version 1)
Quarter: 2016Q4

REPORT INFORMATION
  Report Type: Report from Study
  Country: CO (occurrence: CO)
  Receive Date: 20161201
  Receipt Date: 20161201
  Transmission Date: 20170207
  Serious: Yes (Death, Life-Threatening, Hospitalization, Other)
  Sender: FDA-Public Use
  Company Number: CO-AMGEN-COLSL2016167479

PATIENT
  Age: 69 Year
  Sex: Male

DRUGS (1)
  1. MIMPARA [Suspect]
     Active Substance: CINACALCET HYDROCHLORIDE
     Indication: HYPERPARATHYROIDISM SECONDARY
     Dosage: 90 MG, QD
     Route: 048
     Dates: start: 20160115, end: 20161111

REACTIONS (3)
  - Cardio-respiratory arrest [Fatal]
  - Loss of consciousness [Unknown]
  - Seizure [Fatal]

NARRATIVE: CASE EVENT DATE: 20161112
